FAERS Safety Report 6607663-0 (Version None)
Quarter: 2010Q1

REPORT INFORMATION
  Report Type: 
  Country: None (occurrence: None)
  Receive Date: 20100301
  Receipt Date: 20100222
  Transmission Date: 20100710
  Serious: Yes (Other)
  Sender: FDA-Public Use
  Company Number: GB-JNJFOC-20100209587

PATIENT
  Age: 65 Year
  Sex: Female
  Weight: 79 kg

DRUGS (12)
  1. REMICADE [Suspect]
     Indication: RHEUMATOID ARTHRITIS
     Route: 042
  2. SULPHASALAZINE [Concomitant]
  3. METHOTREXATE [Concomitant]
  4. PREDNISOLONE [Concomitant]
  5. BENDROFLUAZIDE [Concomitant]
  6. CALCICHEW [Concomitant]
  7. FOLIC ACID [Concomitant]
  8. ISTIN [Concomitant]
  9. MELOXICAM [Concomitant]
  10. RANITIDINE [Concomitant]
  11. TRAMADOL HCL [Concomitant]
  12. METFORMIN HYDROCHLORIDE [Concomitant]
     Indication: DIABETES MELLITUS

REACTIONS (1)
  - BREAST CANCER IN SITU [None]
